FAERS Safety Report 17465132 (Version 2)
Quarter: 2020Q1

REPORT INFORMATION
  Report Type: Report from Study
  Country: DZ (occurrence: DZ)
  Receive Date: 20200227
  Receipt Date: 20200313
  Transmission Date: 20200409
  Serious: Yes (Other)
  Sender: FDA-Public Use
  Company Number: DZ-EMD SERONO-9139955

PATIENT
  Age: 39 Year
  Sex: Female

DRUGS (1)
  1. REBIF [Suspect]
     Active Substance: INTERFERON BETA-1A
     Indication: MULTIPLE SCLEROSIS
     Route: 058
     Dates: start: 20170612

REACTIONS (13)
  - Necrosis [Recovered/Resolved]
  - Hypoaesthesia [Not Recovered/Not Resolved]
  - Pain in extremity [Not Recovered/Not Resolved]
  - Muscular weakness [Recovered/Resolved]
  - Treatment noncompliance [Unknown]
  - Needle issue [Unknown]
  - Injection site pain [Recovering/Resolving]
  - Hypertension [Unknown]
  - Obstruction [Recovered/Resolved]
  - Injection site bruising [Recovering/Resolving]
  - Injection site induration [Not Recovered/Not Resolved]
  - Injection site extravasation [Unknown]
  - Scar [Unknown]

NARRATIVE: CASE EVENT DATE: 201706
